FAERS Safety Report 15296635 (Version 1)
Quarter: 2018Q3

REPORT INFORMATION
  Report Type: Spontaneous
  Country: DE (occurrence: DE)
  Receive Date: 20180820
  Receipt Date: 20180820
  Transmission Date: 20181010
  Serious: Yes (Life-Threatening)
  Sender: FDA-Public Use
  Company Number: DE-OCTA-ALB00918DE

PATIENT
  Age: 84 Year
  Sex: Male

DRUGS (1)
  1. ALBUNORM 20% [Suspect]
     Active Substance: ALBUMIN HUMAN
     Indication: HYPOALBUMINAEMIA
     Route: 042
     Dates: start: 20180801, end: 20180802

REACTIONS (7)
  - Urticaria [Recovered/Resolved]
  - Blood pressure decreased [Recovered/Resolved]
  - Dyspnoea [Recovered/Resolved]
  - Shock [Recovered/Resolved]
  - Circulatory collapse [Recovered/Resolved]
  - Flushing [Recovered/Resolved]
  - Resuscitation [Recovered/Resolved]

NARRATIVE: CASE EVENT DATE: 20180802
